FAERS Safety Report 25157116 (Version 1)
Quarter: 2025Q2

REPORT INFORMATION
  Report Type: Report from Study
  Country: DE (occurrence: DE)
  Receive Date: 20250403
  Receipt Date: 20250403
  Transmission Date: 20250716
  Serious: Yes (Other)
  Sender: NOVARTIS
  Company Number: DE-002147023-NVSC2024DE063042

PATIENT
  Sex: Male

DRUGS (14)
  1. BEOVU [Suspect]
     Active Substance: BROLUCIZUMAB-DBLL
     Indication: Neovascular age-related macular degeneration
     Dosage: 0.05 ML, QD (= 6 MG BROLUCIZUMAB, LEFT EYE, 120 MG/ ML)
     Route: 031
     Dates: start: 20220913, end: 20220913
  2. BEOVU [Suspect]
     Active Substance: BROLUCIZUMAB-DBLL
     Dosage: 0.05 ML, QD (= 6 MG BROLUCIZUMAB, LEFT EYE, 120 MG/ ML)
     Route: 031
     Dates: start: 20221013, end: 20221013
  3. BEOVU [Suspect]
     Active Substance: BROLUCIZUMAB-DBLL
     Dosage: 0.05 ML, QD (= 6 MG BROLUCIZUMAB, LEFT EYE, 120 MG/ ML)
     Route: 031
     Dates: start: 20221110, end: 20221110
  4. BEOVU [Suspect]
     Active Substance: BROLUCIZUMAB-DBLL
     Dosage: 0.05 ML, QD (= 6 MG BROLUCIZUMAB, LEFT EYE, 120 MG/ ML)
     Route: 031
     Dates: start: 20221212, end: 20221212
  5. BEOVU [Suspect]
     Active Substance: BROLUCIZUMAB-DBLL
     Dosage: 0.05 ML, QD (= 6 MG BROLUCIZUMAB, LEFT EYE, 120 MG/ ML)
     Route: 031
     Dates: start: 20230110, end: 20230110
  6. BEOVU [Suspect]
     Active Substance: BROLUCIZUMAB-DBLL
     Dosage: 0.05 ML, QD (= 6 MG BROLUCIZUMAB, LEFT EYE, 120 MG/ ML)
     Route: 031
     Dates: start: 20230221, end: 20230221
  7. BEOVU [Suspect]
     Active Substance: BROLUCIZUMAB-DBLL
     Dosage: 0.05 ML, QD (= 6 MG BROLUCIZUMAB, LEFT EYE, 120 MG/ ML)
     Route: 031
     Dates: start: 20230404, end: 20230404
  8. BEOVU [Suspect]
     Active Substance: BROLUCIZUMAB-DBLL
     Dosage: 0.05 ML, QD (= 6 MG BROLUCIZUMAB, LEFT EYE, 120 MG/ ML)
     Route: 031
     Dates: start: 20230601, end: 20230601
  9. BEOVU [Suspect]
     Active Substance: BROLUCIZUMAB-DBLL
     Dosage: 0.05 ML, QD (= 6 MG BROLUCIZUMAB, LEFT EYE, 120 MG/ ML)
     Route: 031
     Dates: start: 20230710, end: 20230710
  10. BEOVU [Suspect]
     Active Substance: BROLUCIZUMAB-DBLL
     Dosage: 0.05 ML, QD (= 6 MG BROLUCIZUMAB, LEFT EYE, 120 MG/ ML)
     Route: 031
     Dates: start: 20230821, end: 20230821
  11. BEOVU [Suspect]
     Active Substance: BROLUCIZUMAB-DBLL
     Dosage: 0.05 ML, QD (= 6 MG BROLUCIZUMAB, LEFT EYE, 120 MG/ ML)
     Route: 031
     Dates: start: 20230925, end: 20230925
  12. BEOVU [Suspect]
     Active Substance: BROLUCIZUMAB-DBLL
     Dosage: 0.05 ML, QD (= 6 MG BROLUCIZUMAB, LEFT EYE, 120 MG/ ML)
     Route: 031
     Dates: start: 20231102, end: 20231102
  13. BEOVU [Suspect]
     Active Substance: BROLUCIZUMAB-DBLL
     Dosage: 0.05 ML, QD (= 6 MG BROLUCIZUMAB, LEFT EYE, 120 MG/ ML)
     Route: 031
     Dates: start: 20231207, end: 20231207
  14. BEOVU [Suspect]
     Active Substance: BROLUCIZUMAB-DBLL
     Dosage: .05 ML, QD (= 6 MG BROLUCIZUMAB, LEFT EYE, 120 MG/ ML)
     Route: 031
     Dates: start: 20240111, end: 20240111

REACTIONS (2)
  - Cataract [Recovered/Resolved]
  - Off label use [Unknown]

NARRATIVE: CASE EVENT DATE: 20230821
